FAERS Safety Report 7984591-X (Version None)
Quarter: 2011Q4

REPORT INFORMATION
  Report Type: 
  Country: None (occurrence: None)
  Receive Date: 20111216
  Receipt Date: 20111213
  Transmission Date: 20120403
  Serious: Yes (Hospitalization, Other)
  Sender: FDA-Public Use
  Company Number: US-ASTRAZENECA-2009UW02287

PATIENT
  Age: 19095 Day
  Sex: Female

DRUGS (23)
  1. RISPERDAL [Concomitant]
     Dosage: 1 TO 3 MG BID
     Dates: start: 20070306
  2. LOTREL [Concomitant]
     Dates: end: 20040121
  3. LUPRON [Concomitant]
     Indication: MENORRHAGIA
  4. SEROQUEL [Suspect]
     Indication: BIPOLAR I DISORDER
     Route: 048
     Dates: start: 20041115, end: 20070201
  5. RISPERDAL [Concomitant]
     Indication: HEADACHE
     Dates: start: 20041115
  6. RISPERDAL [Concomitant]
     Dosage: 1 TO 3 MG BID
     Dates: start: 20070306
  7. DIOVAN [Concomitant]
     Dates: start: 20070306
  8. PEPCID [Concomitant]
     Dates: start: 20070306
  9. LAMICTAL [Concomitant]
     Dates: start: 20070306
  10. DIOVAN [Concomitant]
     Dates: end: 20040121
  11. SEROQUEL [Suspect]
     Indication: BIPOLAR DISORDER
     Route: 048
     Dates: start: 20041115, end: 20070201
  12. COGENTIN [Concomitant]
     Dosage: 1 MG IN THE MORNING AND THE NIGHTLY
     Dates: start: 20070306
  13. LAMICTAL [Concomitant]
     Dates: start: 20070306
  14. TRAZODONE HCL [Concomitant]
     Dates: start: 20070306
  15. SEROQUEL [Suspect]
     Indication: SLEEP DISORDER
     Route: 048
     Dates: start: 20041115, end: 20070201
  16. PAXIL [Concomitant]
     Dates: start: 20041115
  17. RISPERDAL [Concomitant]
     Indication: NASOPHARYNGITIS
     Dates: start: 20041115
  18. DIOVAN HCT [Concomitant]
     Dates: start: 20041115
  19. LOPRESSOR [Concomitant]
     Route: 048
     Dates: start: 20070306
  20. COGENTIN [Concomitant]
     Route: 048
     Dates: start: 20070306
  21. TRILAFON [Concomitant]
     Dates: start: 20070306
  22. METOPROLOL TARTRATE [Concomitant]
     Dates: start: 20070306
  23. AMBIEN [Concomitant]
     Dates: start: 20040306

REACTIONS (10)
  - METABOLIC ENCEPHALOPATHY [None]
  - DEHYDRATION [None]
  - HYPOKALAEMIA [None]
  - DIABETIC HYPEROSMOLAR COMA [None]
  - RENAL FAILURE ACUTE [None]
  - HYPERMAGNESAEMIA [None]
  - HYPERGLYCAEMIC HYPEROSMOLAR NONKETOTIC SYNDROME [None]
  - HYPOPHOSPHATAEMIA [None]
  - HYPONATRAEMIA [None]
  - TYPE 2 DIABETES MELLITUS [None]
